FAERS Safety Report 5724837-1 (Version None)
Quarter: 2008Q2

REPORT INFORMATION
  Report Type: 
  Country: None (occurrence: None)
  Receive Date: 20080501
  Receipt Date: 20080424
  Transmission Date: 20081010
  Serious: Yes (Hospitalization)
  Sender: FDA-Public Use
  Company Number: FR-AVENTIS-200811602FR

PATIENT
  Age: 65 Year
  Sex: Male

DRUGS (6)
  1. TAXOTERE [Suspect]
     Route: 042
     Dates: start: 20070820, end: 20070820
  2. CISPLATIN [Suspect]
     Route: 042
     Dates: start: 20070820, end: 20070820
  3. ZOPHREN                            /00955301/ [Concomitant]
     Route: 042
  4. DEXAMETHASONE [Concomitant]
     Route: 042
  5. PROKINYL [Concomitant]
     Route: 048
  6. EMEND [Concomitant]
     Route: 048

REACTIONS (4)
  - CEREBELLAR SYNDROME [None]
  - HYPOREFLEXIA [None]
  - NYSTAGMUS [None]
  - TREMOR [None]
